FAERS Safety Report 8112796-6 (Version None)
Quarter: 2012Q1

REPORT INFORMATION
  Report Type: 
  Country: None (occurrence: None)
  Receive Date: 20120203
  Receipt Date: 20120126
  Transmission Date: 20120608
  Serious: Yes (Hospitalization)
  Sender: FDA-Public Use
  Company Number: JO-BRISTOL-MYERS SQUIBB COMPANY-15487002

PATIENT
  Age: 27 Year
  Sex: Female
  Weight: 57 kg

DRUGS (6)
  1. APLACE [Concomitant]
  2. LOXONIN [Concomitant]
     Indication: RHEUMATOID ARTHRITIS
  3. PREDNISOLONE [Suspect]
     Indication: RHEUMATOID ARTHRITIS
  4. ORENCIA [Suspect]
     Indication: RHEUMATOID ARTHRITIS
     Dosage: LAST DOSE 02DEC10 250MG/VIAL X 2,REST ON 9FEB11,23FEB,9MAR,6APR,11MAY,8JUN11 500MG
     Route: 041
     Dates: start: 20101202
  5. FAMOTIDINE [Concomitant]
  6. ASPIRIN [Concomitant]

REACTIONS (2)
  - INFECTIOUS PERITONITIS [None]
  - ILEUS [None]
